FAERS Safety Report 17957035 (Version 2)
Quarter: 2020Q3

REPORT INFORMATION
  Report Type: Spontaneous
  Country: FR (occurrence: FR)
  Receive Date: 20200629
  Receipt Date: 20200706
  Transmission Date: 20201103
  Serious: Yes (Life-Threatening, Other)
  Sender: FDA-Public Use
  Company Number: FR-PFIZER INC-2020247870

PATIENT
  Age: 78 Year
  Sex: Male
  Weight: 66.5 kg

DRUGS (5)
  1. ATORVASTATIN CALCIUM. [Suspect]
     Active Substance: ATORVASTATIN CALCIUM
     Dosage: 40 MG (2 CP DE 40 MG LE SOIR)
     Route: 048
     Dates: start: 20200520, end: 20200527
  2. XARELTO [Suspect]
     Active Substance: RIVAROXABAN
     Dosage: 20 MG
     Route: 048
     Dates: start: 20200506, end: 20200527
  3. PANTOPRAZOLE [Suspect]
     Active Substance: PANTOPRAZOLE
     Dosage: 20 MG (LE SOIR)
     Route: 048
     Dates: start: 20200430, end: 20200527
  4. ALPRAZOLAM. [Suspect]
     Active Substance: ALPRAZOLAM
     Dosage: 0.25 MG (LE SOIR)
     Route: 048
     Dates: start: 20200510, end: 20200527
  5. SPIRONOLACTONE. [Suspect]
     Active Substance: SPIRONOLACTONE
     Dosage: 1/2 CP DU 06 AU 13/05, PUIS 1 CP JUSQU^AU 25/05, PUIS 1/2 CP JUSQU^AU 27/05
     Route: 048
     Dates: start: 20200509, end: 20200527

REACTIONS (1)
  - Agranulocytosis [Recovered/Resolved]

NARRATIVE: CASE EVENT DATE: 20200526
